FAERS Safety Report 7290278-1 (Version None)
Quarter: 2011Q1

REPORT INFORMATION
  Report Type: 
  Country: None (occurrence: None)
  Receive Date: 20110214
  Receipt Date: 20101102
  Transmission Date: 20110831
  Serious: No
  Sender: FDA-Public Use
  Company Number: US-BAYER-201041107NA

PATIENT
  Sex: Female

DRUGS (1)
  1. MIRENA [Suspect]
     Dosage: 20 ?G/D, CONT
     Route: 015
     Dates: end: 20100922

REACTIONS (5)
  - WEIGHT INCREASED [None]
  - AMENORRHOEA [None]
  - GENITAL HAEMORRHAGE [None]
  - BACK PAIN [None]
  - ALOPECIA [None]
